FAERS Safety Report 8945374 (Version 2)
Quarter: 2013Q1

REPORT INFORMATION
  Report Type: Spontaneous
  Country: US (occurrence: US)
  Receive Date: 20121205
  Receipt Date: 20130109
  Transmission Date: 20140127
  Serious: No
  Sender: FDA-Public Use
  Company Number: US-009507513-1212USA000966

PATIENT
  Age: 82 Year
  Sex: Female

DRUGS (1)
  1. LOSARTAN POTASSIUM [Suspect]
     Dosage: 25 MG, ONCE DAILY IN THE EVENING

REACTIONS (2)
  - Muscle spasms [Recovered/Resolved]
  - Muscle spasms [Unknown]
